FAERS Safety Report 18822555 (Version 2)
Quarter: 2021Q3

REPORT INFORMATION
  Report Type: Spontaneous
  Country: US (occurrence: US)
  Receive Date: 20210202
  Receipt Date: 20210730
  Transmission Date: 20211014
  Serious: Yes (Other)
  Sender: FDA-Public Use
  Company Number: US-PFIZER INC-2020020960

PATIENT
  Age: 59 Year
  Sex: Female

DRUGS (2)
  1. LYRICA [Suspect]
     Active Substance: PREGABALIN
     Dosage: 300 MG, 3X/DAY
     Route: 048
  2. LYRICA [Suspect]
     Active Substance: PREGABALIN
     Dosage: 300 MG, DAILY (75 MG CAPSULE, 4 CAPSULES DAILY (1 CAPSULE TWICE DAILY, AND 2 CAPSULES AT BEDTIME)
     Route: 048

REACTIONS (3)
  - Intentional product misuse [Unknown]
  - Dementia [Unknown]
  - Prescribed overdose [Unknown]
